FAERS Safety Report 8679260 (Version 2)
Quarter: 2013Q3

REPORT INFORMATION
  Report Type: Report from Study
  Country: MX (occurrence: MX)
  Receive Date: 20120724
  Receipt Date: 20130826
  Transmission Date: 20140515
  Serious: Yes (Other)
  Sender: FDA-Public Use
  Company Number: PHHY2012MX062905

PATIENT
  Age: 65 Year
  Sex: Female

DRUGS (5)
  1. ACLASTA [Suspect]
     Indication: OSTEOPOROSIS
     Dosage: 5 MG/100 ML, PER YEAR
     Route: 042
     Dates: start: 2009
  2. ACLASTA [Suspect]
     Dosage: 5 MG/100 ML, PER YEAR
     Route: 042
     Dates: start: 201009
  3. ACLASTA [Suspect]
     Dosage: 5 MG/100 ML, PER YEAR
     Route: 042
     Dates: start: 2011
  4. CALCIUM [Concomitant]
     Dosage: UNK UKN, QD
     Dates: start: 201007
  5. ARCOXIA [Concomitant]
     Dosage: UNK UKN, UNK

REACTIONS (11)
  - Embolic stroke [Recovered/Resolved with Sequelae]
  - Hyperaesthesia [Not Recovered/Not Resolved]
  - Hearing impaired [Not Recovered/Not Resolved]
  - Visual impairment [Not Recovered/Not Resolved]
  - Muscular weakness [Not Recovered/Not Resolved]
  - Pain in extremity [Not Recovered/Not Resolved]
  - Amnesia [Not Recovered/Not Resolved]
  - Speech disorder [Not Recovered/Not Resolved]
  - Abasia [Recovered/Resolved]
  - Gastric cancer [Recovered/Resolved]
  - Arthralgia [Not Recovered/Not Resolved]
